FAERS Safety Report 4779862-4 (Version None)
Quarter: 2005Q3

REPORT INFORMATION
  Report Type: 
  Country: None (occurrence: None)
  Receive Date: 20050914
  Receipt Date: 20040824
  Transmission Date: 20060218
  Serious: Yes (Death, Other)
  Sender: FDA-Public Use
  Company Number: 163-20785-04070001

PATIENT
  Age: 74 Year
  Sex: Male
  Weight: 65.7716 kg

DRUGS (11)
  1. THALOMID [Suspect]
     Indication: METASTATIC MALIGNANT MELANOMA
     Dosage: 200 MG, QHS, ORAL
     Route: 048
     Dates: start: 20040611, end: 20040624
  2. THALOMID [Suspect]
     Indication: METASTATIC MALIGNANT MELANOMA
     Dosage: 200 MG, QHS, ORAL
     Route: 048
     Dates: start: 20040717, end: 20040717
  3. PEG-INTRON [Suspect]
     Indication: METASTATIC MALIGNANT MELANOMA
     Dosage: 33 UG, WEEKLY, SUBCUTANEOUS;  33 UG, EVERY WEEK, SUBCUTANEOUS
     Route: 058
     Dates: start: 20040611, end: 20040618
  4. PEG-INTRON [Suspect]
     Indication: METASTATIC MALIGNANT MELANOMA
     Dosage: 33 UG, WEEKLY, SUBCUTANEOUS;  33 UG, EVERY WEEK, SUBCUTANEOUS
     Route: 058
     Dates: start: 20040716, end: 20040716
  5. TOPROL (METOPROLOL) [Concomitant]
  6. ISORDIL [Concomitant]
  7. ACCUPRIL [Concomitant]
  8. PROTONIX [Concomitant]
  9. ACTOS [Concomitant]
  10. LENTE INSULIN [Concomitant]
  11. HUMALOG INSULIN (INSULIN LISPRO) [Concomitant]

REACTIONS (4)
  - BRAIN DEATH [None]
  - BRAIN HERNIATION [None]
  - DISEASE PROGRESSION [None]
  - DYSPNOEA [None]
